FAERS Safety Report 8819107 (Version 1)
Quarter: 2012Q4

REPORT INFORMATION
  Report Type: 
  Country: US (occurrence: US)
  Receive Date: 20121002
  Receipt Date: 20121002
  Transmission Date: 20130627
  Serious: No
  Sender: FDA-Public Use
  Company Number: US-PFIZER INC-2012241846

PATIENT
  Sex: Female

DRUGS (1)
  1. ADVIL [Suspect]
     Indication: TOOTHACHE
     Dosage: three tablets, UNK
     Route: 048
     Dates: start: 2012

REACTIONS (3)
  - Swelling [Unknown]
  - Fluid retention [Unknown]
  - Weight increased [Unknown]
